FAERS Safety Report 14978912 (Version 1)
Quarter: 2018Q2

REPORT INFORMATION
  Report Type: Spontaneous
  Country: IT (occurrence: IT)
  Receive Date: 20180606
  Receipt Date: 20180606
  Transmission Date: 20180711
  Serious: Yes (Hospitalization)
  Sender: FDA-Public Use
  Company Number: IT-BAYER-2018-106116

PATIENT
  Age: 94 Year
  Sex: Male

DRUGS (6)
  1. CARDICOR [Concomitant]
     Active Substance: BISOPROLOL
  2. FOLINA [Concomitant]
     Active Substance: FOLIC ACID
  3. CARDIOASPIRIN 100 MG [Suspect]
     Active Substance: ASPIRIN
     Indication: THROMBOSIS PROPHYLAXIS
     Route: 048
     Dates: start: 20170101, end: 20171207
  4. FINASTERIDE. [Concomitant]
     Active Substance: FINASTERIDE
  5. LASIX [Concomitant]
     Active Substance: FUROSEMIDE
  6. CLOPIDOGREL BISULFATE. [Suspect]
     Active Substance: CLOPIDOGREL BISULFATE
     Indication: THROMBOSIS PROPHYLAXIS
     Route: 048
     Dates: start: 20170101, end: 20171207

REACTIONS (2)
  - Headache [Unknown]
  - Subdural haematoma [Unknown]

NARRATIVE: CASE EVENT DATE: 20171207
